FAERS Safety Report 20778715 (Version 2)
Quarter: 2022Q3

REPORT INFORMATION
  Report Type: Spontaneous
  Country: US (occurrence: US)
  Receive Date: 20220503
  Receipt Date: 20220816
  Transmission Date: 20221027
  Serious: No
  Sender: FDA-Public Use
  Company Number: US-HORIZON THERAPEUTICS-HZN-2022-002687

PATIENT
  Sex: Female

DRUGS (8)
  1. TEPEZZA [Suspect]
     Active Substance: TEPROTUMUMAB-TRBW
     Indication: Product used for unknown indication
     Dosage: 600 MG (FIRST INFUSION)
     Route: 042
     Dates: start: 20211008
  2. TEPEZZA [Suspect]
     Active Substance: TEPROTUMUMAB-TRBW
     Dosage: 1200 MG (SECOND INFUSION)
     Route: 042
     Dates: start: 20211029
  3. TEPEZZA [Suspect]
     Active Substance: TEPROTUMUMAB-TRBW
     Dosage: 1200 MG (THIRD INFUSION)
     Route: 042
     Dates: start: 20211119
  4. TEPEZZA [Suspect]
     Active Substance: TEPROTUMUMAB-TRBW
     Dosage: 1200 MG (FOURTH INFUSION)
     Route: 042
     Dates: start: 20211210
  5. TEPEZZA [Suspect]
     Active Substance: TEPROTUMUMAB-TRBW
     Dosage: 1200 MG (FIFTH INFUSION)
     Route: 042
     Dates: start: 20211230
  6. TEPEZZA [Suspect]
     Active Substance: TEPROTUMUMAB-TRBW
     Dosage: 1200 MG (SIXTH INFUSION)
     Route: 042
     Dates: start: 20220121
  7. TEPEZZA [Suspect]
     Active Substance: TEPROTUMUMAB-TRBW
     Dosage: 1200 MG (SEVENTH INFUSION)
     Route: 042
     Dates: start: 20220211
  8. TEPEZZA [Suspect]
     Active Substance: TEPROTUMUMAB-TRBW
     Dosage: 1200 MG (EIGHTH INFUSION)
     Route: 042
     Dates: start: 20220304

REACTIONS (2)
  - Hypoacusis [Unknown]
  - Inappropriate schedule of product administration [Unknown]

NARRATIVE: CASE EVENT DATE: 20220306
